FAERS Safety Report 10417315 (Version 2)
Quarter: 2014Q3

REPORT INFORMATION
  Report Type: Spontaneous
  Country: BE (occurrence: BE)
  Receive Date: 20140828
  Receipt Date: 20140828
  Transmission Date: 20150326
  Serious: Yes (Hospitalization)
  Sender: FDA-Public Use
  Company Number: BE-MYLAN-2013S1023101

PATIENT

DRUGS (2)
  1. EPIPEN [Suspect]
     Active Substance: EPINEPHRINE
     Indication: ARTHROPOD STING
     Dosage: UNK
     Route: 030
     Dates: start: 20130930, end: 20130930
  2. ADRENALINE [Suspect]
     Active Substance: EPINEPHRINE
     Dosage: .8 MG,UNK
     Dates: start: 20130930, end: 20130930

REACTIONS (3)
  - Paraesthesia [Unknown]
  - Wrong technique in drug usage process [Recovered/Resolved]
  - Drug ineffective [Unknown]

NARRATIVE: CASE EVENT DATE: 20130930
